FAERS Safety Report 16074201 (Version 1)
Quarter: 2019Q1

REPORT INFORMATION
  Report Type: Report from Study
  Country: FR (occurrence: FR)
  Receive Date: 20190314
  Receipt Date: 20190314
  Transmission Date: 20190418
  Serious: Yes (Hospitalization)
  Sender: FDA-Public Use
  Company Number: FR-ELI_LILLY_AND_COMPANY-FR201903007378

PATIENT
  Age: 54 Year
  Sex: Male
  Weight: 72 kg

DRUGS (5)
  1. CETUXIMAB. [Suspect]
     Active Substance: CETUXIMAB
     Dosage: 250 MG/M2, WEEKLY (1/W)
     Route: 042
     Dates: start: 20190211
  2. CETUXIMAB. [Suspect]
     Active Substance: CETUXIMAB
     Indication: SQUAMOUS CELL CARCINOMA OF HEAD AND NECK
     Dosage: 400 MG/M2, SINGLE
     Route: 042
     Dates: start: 20190204, end: 20190204
  3. TRAMADOL. [Concomitant]
     Active Substance: TRAMADOL
     Indication: ORAL PAIN
     Dosage: UNK
     Route: 048
     Dates: start: 20190228
  4. AVELUMAB [Concomitant]
     Active Substance: AVELUMAB
     Indication: SQUAMOUS CELL CARCINOMA OF HEAD AND NECK
     Dosage: 10 MG/KG, UNK
     Route: 042
     Dates: start: 20190204
  5. PARACETAMOL [Concomitant]
     Active Substance: ACETAMINOPHEN
     Indication: ORAL PAIN
     Dosage: UNK
     Route: 048

REACTIONS (2)
  - Malnutrition [Not Recovered/Not Resolved]
  - Stomatitis [Not Recovered/Not Resolved]

NARRATIVE: CASE EVENT DATE: 20190305
